FAERS Safety Report 4894353-8 (Version None)
Quarter: 2006Q1

REPORT INFORMATION
  Report Type: 
  Country: None (occurrence: None)
  Receive Date: 20060127
  Receipt Date: 20060121
  Transmission Date: 20060701
  Serious: Yes (Other)
  Sender: FDA-Public Use
  Company Number: PHEH2006US01191

PATIENT
  Age: 55 Year
  Sex: Male

DRUGS (4)
  1. ZOMETA [Suspect]
     Indication: METASTASES TO BONE
     Dosage: 4 MG, QMO
     Route: 042
     Dates: start: 20021001, end: 20051110
  2. CHEMOTHERAPEUTICS,OTHER [Concomitant]
     Dates: start: 20030101
  3. STEROIDS NOS [Concomitant]
     Dates: start: 20030101
  4. KETOCONAZOLE [Concomitant]
     Dates: start: 20030101

REACTIONS (1)
  - TOOTH ABSCESS [None]
